FAERS Safety Report 5586708-3 (Version None)
Quarter: 2008Q1

REPORT INFORMATION
  Report Type: 
  Country: None (occurrence: None)
  Receive Date: 20080110
  Receipt Date: 20071031
  Transmission Date: 20080703
  Serious: No
  Sender: FDA-Public Use
  Company Number: US-BAYER-US-2007-041307

PATIENT
  Age: 35 Year
  Sex: Female
  Weight: 68 kg

DRUGS (4)
  1. YAZ [Suspect]
     Indication: ORAL CONTRACEPTION
     Route: 048
     Dates: start: 20071014
  2. SPIRONOLACTONE [Suspect]
     Dosage: UNIT DOSE: 50 MG
     Route: 048
     Dates: start: 20071014
  3. SPIRONOLACTONE [Suspect]
     Dosage: UNIT DOSE: 50 MG
     Route: 048
  4. ZOLOFT [Concomitant]
     Route: 048

REACTIONS (2)
  - FATIGUE [None]
  - FEELING JITTERY [None]
